FAERS Safety Report 12959482 (Version 1)
Quarter: 2016Q4

REPORT INFORMATION
  Report Type: Report from Study
  Country: US (occurrence: US)
  Receive Date: 20161121
  Receipt Date: 20161121
  Transmission Date: 20170207
  Serious: Yes (Death)
  Sender: FDA-Public Use
  Company Number: PHEH2016US030349

PATIENT
  Sex: Female

DRUGS (1)
  1. GLEEVEC [Suspect]
     Active Substance: IMATINIB MESYLATE
     Indication: WHITE BLOOD CELL COUNT
     Dosage: 400 MG, QD
     Route: 048

REACTIONS (2)
  - Renal failure [Fatal]
  - Product use issue [Unknown]
